FAERS Safety Report 5204878-3 (Version None)
Quarter: 2007Q1

REPORT INFORMATION
  Report Type: 
  Country: None (occurrence: None)
  Receive Date: 20070110
  Receipt Date: 20060822
  Transmission Date: 20070707
  Serious: No
  Sender: FDA-Public Use
  Company Number: US-BRISTOL-MYERS SQUIBB COMPANY-13484530

PATIENT
  Age: 57 Year
  Sex: Female
  Weight: 79 kg

DRUGS (2)
  1. ABILIFY [Suspect]
     Indication: BIPOLAR DISORDER
     Dosage: DOSE DECR TO 2.5MG
     Route: 048
     Dates: start: 20060301
  2. TOPAMAX [Concomitant]

REACTIONS (1)
  - INCREASED APPETITE [None]
